FAERS Safety Report 12283484 (Version 1)
Quarter: 2016Q2

REPORT INFORMATION
  Report Type: Spontaneous
  Country: US (occurrence: US)
  Receive Date: 20160419
  Receipt Date: 20160419
  Transmission Date: 20160815
  Serious: No
  Sender: FDA-Public Use
  Company Number: US-BANPHARM-20153477

PATIENT
  Age: 84 Year
  Sex: Female
  Weight: 86.18 kg

DRUGS (7)
  1. BLOOD PRESSURE MEDICATION [Concomitant]
     Active Substance: UNSPECIFIED INGREDIENT
  2. GENERIC SYNTHROID [Concomitant]
     Active Substance: LEVOTHYROXINE SODIUM
  3. GENERIC VITAMIN C [Concomitant]
  4. CHOLESTEROL MEDICATION [Concomitant]
     Active Substance: UNSPECIFIED INGREDIENT
  5. CENTRUM [Concomitant]
     Active Substance: VITAMINS
  6. GENERIC VITAMIN B12 [Concomitant]
  7. ALEVE [Suspect]
     Active Substance: NAPROXEN SODIUM
     Indication: PAIN
     Dosage: 1 DF, PRN,
     Route: 048

REACTIONS (1)
  - Drug ineffective [Unknown]
